FAERS Safety Report 21151098 (Version 1)
Quarter: 2022Q3

REPORT INFORMATION
  Report Type: Other
  Country: None (occurrence: CN)
  Receive Date: 20220729
  Receipt Date: 20220729
  Transmission Date: 20221026
  Serious: Yes (Other)
  Sender: FDA-Public Use
  Company Number: CN-MLV Pharma LLC-2131392

PATIENT
  Sex: Male

DRUGS (1)
  1. BETAMETHASONE DIPROPIONATE [Suspect]
     Active Substance: BETAMETHASONE DIPROPIONATE
     Indication: Dermatitis
     Route: 030

REACTIONS (1)
  - Fungal skin infection [Recovered/Resolved]
